FAERS Safety Report 8190826 (Version 3)
Quarter: 2012Q4

REPORT INFORMATION
  Report Type: 
  Country: FR (occurrence: FR)
  Receive Date: 20111020
  Receipt Date: 20121101
  Transmission Date: 20130627
  Serious: Yes (Death, Hospitalization)
  Sender: FDA-Public Use
  Company Number: FR-UCBSA-043383

PATIENT
  Age: 83 Year
  Sex: Female

DRUGS (3)
  1. KEPPRA [Suspect]
     Route: 048
     Dates: start: 20111007, end: 20111011
  2. LEVOTHYROX [Concomitant]
     Indication: HYPOTHYROIDISM
     Route: 048
  3. SOLUPRED [Concomitant]
     Indication: OEDEMA
     Route: 048

REACTIONS (1)
  - Hydrocephalus [Fatal]
